FAERS Safety Report 5904052-9 (Version None)
Quarter: 2008Q3

REPORT INFORMATION
  Report Type: 
  Country: None (occurrence: None)
  Receive Date: 20080919
  Receipt Date: 20080722
  Transmission Date: 20090109
  Serious: Yes (Other)
  Sender: FDA-Public Use
  Company Number: US-WYE-H05227208

PATIENT
  Sex: Female

DRUGS (1)
  1. PRISTIQ [Suspect]
     Indication: MAJOR DEPRESSION
     Dosage: 50 MG 1XP ER 1 DAY, ORAL
     Route: 048
     Dates: start: 20080708, end: 20080718

REACTIONS (1)
  - BLOOD PRESSURE INCREASED [None]
